FAERS Safety Report 16011043 (Version 2)
Quarter: 2019Q1

REPORT INFORMATION
  Report Type: Spontaneous
  Country: PT (occurrence: PT)
  Receive Date: 20190227
  Receipt Date: 20190307
  Transmission Date: 20190418
  Serious: Yes (Disabling)
  Sender: FDA-Public Use
  Company Number: PT-ACCORD-109815

PATIENT
  Sex: Female

DRUGS (1)
  1. ATORVASTATIN/ATORVASTATIN CALCIUM [Suspect]
     Active Substance: ATORVASTATIN CALCIUM
     Indication: HYPERCHOLESTEROLAEMIA
     Dosage: THERE WAS REDUCTION TO 10 MG / DAY WITH SLIGHT IMPROVEMENT.
     Route: 048
     Dates: end: 20180725

REACTIONS (5)
  - Haematoma [Recovering/Resolving]
  - Amnesia [Recovering/Resolving]
  - Chest pain [Recovering/Resolving]
  - Rash pruritic [Recovering/Resolving]
  - Muscle fatigue [Recovering/Resolving]
